FAERS Safety Report 14499189 (Version 1)
Quarter: 2018Q1

REPORT INFORMATION
  Report Type: Spontaneous
  Country: ES (occurrence: ES)
  Receive Date: 20180207
  Receipt Date: 20180207
  Transmission Date: 20180509
  Serious: Yes (Hospitalization)
  Sender: FDA-Public Use
  Company Number: ES-ELI_LILLY_AND_COMPANY-ES201802002008

PATIENT
  Age: 47 Year
  Sex: Male
  Weight: 65 kg

DRUGS (2)
  1. OLANZAPINE. [Suspect]
     Active Substance: OLANZAPINE
     Indication: ACUTE PSYCHOSIS
     Dosage: UNK UNK, UNKNOWN
     Route: 048
     Dates: start: 20171122, end: 20171127
  2. QUETIAPINA [Concomitant]
     Active Substance: QUETIAPINE
     Indication: ACUTE PSYCHOSIS
     Dosage: UNK UNK, UNKNOWN
     Route: 048
     Dates: start: 20171121, end: 20171122

REACTIONS (1)
  - Neutropenia [Recovered/Resolved]

NARRATIVE: CASE EVENT DATE: 20171128
